FAERS Safety Report 17284183 (Version 3)
Quarter: 2020Q2

REPORT INFORMATION
  Report Type: Report from Study
  Country: FR (occurrence: FR)
  Receive Date: 20200117
  Receipt Date: 20200504
  Transmission Date: 20200713
  Serious: Yes (Hospitalization)
  Sender: FDA-Public Use
  Company Number: FR-RECORDATI RARE DISEASES-2079130

PATIENT
  Age: 20 Year
  Sex: Female
  Weight: 51.8 kg

DRUGS (7)
  1. CARBAGLU [Suspect]
     Active Substance: CARGLUMIC ACID
     Indication: HYPERGLYCINAEMIA
     Dates: start: 20170202, end: 20191212
  2. LEVOCARNIL [LEVOCARNITINE] [Concomitant]
     Active Substance: LEVOCARNITINE
     Dates: start: 19990727
  3. BIOTINE [BIOTIN] [Concomitant]
     Active Substance: BIOTIN
     Dates: start: 20010219
  4. MMA/PA EXPRESS15 [Concomitant]
     Dates: start: 20190828
  5. XMTVI MAXAMAID [Concomitant]
  6. CLAMOXYL [AMOXICILLIN] [Concomitant]
     Active Substance: AMOXICILLIN
     Dates: start: 20170127
  7. CARBAGLU [Suspect]
     Active Substance: CARGLUMIC ACID
     Dates: start: 20191212

REACTIONS (2)
  - Treatment noncompliance [Recovered/Resolved]
  - Metabolic acidosis [Recovered/Resolved]

NARRATIVE: CASE EVENT DATE: 20191205
